FAERS Safety Report 18600417 (Version 3)
Quarter: 2021Q1

REPORT INFORMATION
  Report Type: Spontaneous
  Country: GB (occurrence: GB)
  Receive Date: 20201210
  Receipt Date: 20210105
  Transmission Date: 20210419
  Serious: Yes (Other)
  Sender: FDA-Public Use
  Company Number: GB-PFIZER INC-2020487763

PATIENT
  Age: 65 Year
  Sex: Female
  Weight: 74.8 kg

DRUGS (5)
  1. ENCORAFENIB [Suspect]
     Active Substance: ENCORAFENIB
     Indication: BRAF GENE MUTATION
     Dosage: 300 MG, QD (1/DAY)
     Route: 048
     Dates: start: 20201006
  2. CETUXIMAB. [Suspect]
     Active Substance: CETUXIMAB
     Indication: COLORECTAL CANCER
  3. ENCORAFENIB [Suspect]
     Active Substance: ENCORAFENIB
     Indication: COLORECTAL CANCER
     Dosage: 225 MG, QD (1/DAY)
     Dates: start: 20201116, end: 20201130
  4. CETUXIMAB. [Suspect]
     Active Substance: CETUXIMAB
     Indication: BRAF GENE MUTATION
     Dosage: UNK
     Route: 048
     Dates: start: 20201006, end: 20201130
  5. METFORMIN [Concomitant]
     Active Substance: METFORMIN HYDROCHLORIDE
     Indication: DIABETES MELLITUS
     Dosage: UNK UNK, UNKNOWN
     Route: 048

REACTIONS (2)
  - Oedema peripheral [Recovering/Resolving]
  - Hypoalbuminaemia [Unknown]

NARRATIVE: CASE EVENT DATE: 20201102
